FAERS Safety Report 13324943 (Version 1)
Quarter: 2017Q1

REPORT INFORMATION
  Report Type: Spontaneous
  Country: RO (occurrence: RO)
  Receive Date: 20170310
  Receipt Date: 20170310
  Transmission Date: 20170428
  Serious: Yes (Hospitalization)
  Sender: FDA-Public Use
  Company Number: RO-ABBVIE-17K-135-1902602-00

PATIENT
  Age: 63 Year
  Sex: Male

DRUGS (1)
  1. HUMIRA [Suspect]
     Active Substance: ADALIMUMAB
     Indication: PSORIASIS
     Route: 058
     Dates: start: 201210, end: 201702

REACTIONS (10)
  - Liver function test abnormal [Unknown]
  - Decreased appetite [Not Recovered/Not Resolved]
  - Insomnia [Unknown]
  - Asthenia [Not Recovered/Not Resolved]
  - Protein urine present [Unknown]
  - Red blood cell sedimentation rate increased [Unknown]
  - White blood cells urine positive [Unknown]
  - Weight decreased [Not Recovered/Not Resolved]
  - Pallor [Unknown]
  - Urine bilirubin increased [Unknown]

NARRATIVE: CASE EVENT DATE: 201702
